FAERS Safety Report 17553649 (Version 2)
Quarter: 2020Q2

REPORT INFORMATION
  Report Type: Spontaneous
  Country: HR (occurrence: HR)
  Receive Date: 20200317
  Receipt Date: 20200401
  Transmission Date: 20200713
  Serious: Yes (Other)
  Sender: FDA-Public Use
  Company Number: HR-US-PROVELL PHARMACEUTICALS LLC-9151485

PATIENT
  Age: 45 Year
  Sex: Female

DRUGS (3)
  1. EUTHYROX [Suspect]
     Active Substance: LEVOTHYROXINE SODIUM
     Dosage: EUTHYROX NEW FORMULATION: 100 UG DOSE 6 DAYS PER WEEK, AND 125 UG ONCE PER WEEK
     Route: 048
     Dates: start: 2019, end: 202003
  2. EUTHYROX [Suspect]
     Active Substance: LEVOTHYROXINE SODIUM
     Dosage: EUTHYROX OLD FORMULATION
     Dates: start: 20200309
  3. EUTHYROX [Suspect]
     Active Substance: LEVOTHYROXINE SODIUM
     Indication: THYROID B-CELL LYMPHOMA
     Dosage: EUTHYROX OLD FORMULATION: 100 UG AND 125 UG ONCE OR TWICE PER WEEK

REACTIONS (4)
  - Dry skin [Recovering/Resolving]
  - Endometriosis [Unknown]
  - Blood thyroid stimulating hormone increased [Recovering/Resolving]
  - Fatigue [Recovering/Resolving]

NARRATIVE: CASE EVENT DATE: 201911
